FAERS Safety Report 18447344 (Version 6)
Quarter: 2021Q1

REPORT INFORMATION
  Report Type: Report from Study
  Country: NL (occurrence: NL)
  Receive Date: 20201030
  Receipt Date: 20210210
  Transmission Date: 20210419
  Serious: Yes (Death, Hospitalization, Other)
  Sender: FDA-Public Use
  Company Number: NL-JNJFOC-A-CH2018-182053

PATIENT
  Age: 79 Year
  Sex: Female
  Weight: 69 kg

DRUGS (32)
  1. OPSUMIT [Suspect]
     Active Substance: MACITENTAN
     Indication: PULMONARY ARTERIAL HYPERTENSION
     Dosage: 10 MG, QD
     Route: 048
     Dates: start: 20170920, end: 20210129
  2. UPTRAVI [Suspect]
     Active Substance: SELEXIPAG
     Dosage: 400 MCG, QD
     Route: 048
     Dates: start: 20180902, end: 20180909
  3. UPTRAVI [Suspect]
     Active Substance: SELEXIPAG
     Dosage: 1200 MCG, QD
     Route: 048
     Dates: start: 20180916, end: 20180929
  4. UPTRAVI [Suspect]
     Active Substance: SELEXIPAG
     Dosage: 800 MCG, BID
     Route: 048
     Dates: start: 20180929, end: 20181005
  5. OXYGEN. [Concomitant]
     Active Substance: OXYGEN
     Indication: PULMONARY ARTERIAL HYPERTENSION
     Dosage: UNK
     Route: 055
     Dates: start: 20170602
  6. CANDESARTAN CILEXETIL W/HYDROCHLOROTHIAZIDE [Concomitant]
     Active Substance: CANDESARTAN CILEXETIL\HYDROCHLOROTHIAZIDE
     Indication: PRODUCT USED FOR UNKNOWN INDICATION
     Dosage: UNK
     Route: 048
     Dates: start: 201706, end: 2018
  7. TIOTROPIUM [Concomitant]
     Active Substance: TIOTROPIUM
     Indication: PRODUCT USED FOR UNKNOWN INDICATION
     Dosage: UNK
     Route: 055
     Dates: start: 20170828
  8. MOMETASONE [Concomitant]
     Active Substance: MOMETASONE
     Indication: PRODUCT USED FOR UNKNOWN INDICATION
     Dosage: UNK
     Route: 055
     Dates: start: 201706
  9. FLECAINIDE [Concomitant]
     Active Substance: FLECAINIDE
     Indication: PRODUCT USED FOR UNKNOWN INDICATION
     Dosage: UNK
     Route: 048
     Dates: start: 201706, end: 20191213
  10. COLECALCIFEROL [Concomitant]
     Active Substance: CHOLECALCIFEROL
     Indication: PRODUCT USED FOR UNKNOWN INDICATION
     Dosage: UNK
     Route: 048
     Dates: start: 201706
  11. UPTRAVI [Suspect]
     Active Substance: SELEXIPAG
     Indication: PULMONARY ARTERIAL HYPERTENSION
     Dosage: 800 MCG, QD
     Route: 048
     Dates: start: 20180909, end: 20180916
  12. CETRIZINE [Concomitant]
     Active Substance: CETIRIZINE HYDROCHLORIDE
     Dosage: UNK
     Route: 048
     Dates: start: 20191207, end: 20191213
  13. UPTRAVI [Suspect]
     Active Substance: SELEXIPAG
     Route: 048
     Dates: start: 20210103, end: 20210110
  14. UPTRAVI [Suspect]
     Active Substance: SELEXIPAG
     Route: 048
     Dates: start: 20210110, end: 20210129
  15. SILDENAFIL. [Suspect]
     Active Substance: SILDENAFIL
     Indication: PULMONARY ARTERIAL HYPERTENSION
     Route: 048
     Dates: start: 20171206, end: 20180130
  16. BARNIDIPINE [Concomitant]
     Active Substance: BARNIDIPINE
     Dosage: UNK
     Route: 048
     Dates: start: 20181213, end: 20201008
  17. PANTOPRAZOLE [Concomitant]
     Active Substance: PANTOPRAZOLE
     Indication: PRODUCT USED FOR UNKNOWN INDICATION
     Dosage: UNK
     Route: 048
     Dates: start: 201706
  18. FLUTICASON [Concomitant]
     Active Substance: FLUTICASONE
     Indication: PRODUCT USED FOR UNKNOWN INDICATION
     Dosage: UNK
     Route: 050
     Dates: start: 20191207, end: 20191217
  19. UPTRAVI [Suspect]
     Active Substance: SELEXIPAG
     Route: 048
     Dates: start: 20181005, end: 20210103
  20. FUROSEMIDE. [Concomitant]
     Active Substance: FUROSEMIDE
     Indication: DYSPNOEA
     Route: 042
     Dates: start: 20201007, end: 20201013
  21. FUROSEMIDE. [Concomitant]
     Active Substance: FUROSEMIDE
     Indication: PLEURAL EFFUSION
     Dosage: 80 MG, QD
     Route: 048
  22. CETOMACROGOL W/PARAFFIN, LIQUID/PROPYLENE GLY [Concomitant]
     Indication: PRODUCT USED FOR UNKNOWN INDICATION
     Dosage: UNK
     Route: 061
     Dates: start: 201706
  23. PRAVASTATIN. [Concomitant]
     Active Substance: PRAVASTATIN
     Indication: PRODUCT USED FOR UNKNOWN INDICATION
     Dosage: UNK
     Route: 048
     Dates: start: 201706
  24. METOPROLOL. [Concomitant]
     Active Substance: METOPROLOL
     Indication: PRODUCT USED FOR UNKNOWN INDICATION
     Dosage: UNK
     Route: 048
     Dates: start: 201706, end: 20191213
  25. LEVOCETIRIZINE [Concomitant]
     Active Substance: LEVOCETIRIZINE
     Indication: PRODUCT USED FOR UNKNOWN INDICATION
     Dosage: UNK
     Route: 048
     Dates: start: 201706
  26. PARACETAMOL [Concomitant]
     Active Substance: ACETAMINOPHEN
     Indication: PAIN
     Route: 048
     Dates: start: 20201010, end: 20201011
  27. FUROSEMIDE. [Concomitant]
     Active Substance: FUROSEMIDE
     Dosage: UNK
     Route: 042
     Dates: start: 20191206, end: 20191209
  28. ACENOCUMAROL [Concomitant]
     Active Substance: ACENOCOUMAROL
     Indication: PRODUCT USED FOR UNKNOWN INDICATION
     Dosage: UNK
     Route: 048
     Dates: start: 201706
  29. ADCIRCA [Concomitant]
     Active Substance: TADALAFIL
     Indication: PULMONARY ARTERIAL HYPERTENSION
     Dosage: 40 MG, QD
     Route: 048
     Dates: start: 20180207
  30. FUROSEMIDE. [Concomitant]
     Active Substance: FUROSEMIDE
     Dosage: UNK, BID
     Route: 048
  31. BARNIDIPINE [Concomitant]
     Active Substance: BARNIDIPINE
     Indication: PRODUCT USED FOR UNKNOWN INDICATION
     Dosage: UNK
     Route: 048
     Dates: start: 201706, end: 20181114
  32. NIFEDIPINE. [Concomitant]
     Active Substance: NIFEDIPINE
     Dosage: UNK
     Route: 048
     Dates: start: 20191207, end: 20191217

REACTIONS (23)
  - Dyspnoea [Recovering/Resolving]
  - Weight decreased [Recovered/Resolved with Sequelae]
  - Hypoxia [Recovering/Resolving]
  - Hypotension [Not Recovered/Not Resolved]
  - Renal impairment [Recovering/Resolving]
  - Constipation [Recovered/Resolved]
  - Disease progression [Not Recovered/Not Resolved]
  - Cardiac failure [Recovering/Resolving]
  - Peripheral swelling [Unknown]
  - Creatinine renal clearance decreased [Not Recovered/Not Resolved]
  - Right ventricular failure [Not Recovered/Not Resolved]
  - Pulmonary oedema [Unknown]
  - Decreased appetite [Unknown]
  - Dry eye [Unknown]
  - Haematuria [Unknown]
  - Dysphagia [Unknown]
  - Pleural effusion [Recovering/Resolving]
  - Atrioventricular block complete [Recovering/Resolving]
  - Swelling face [Unknown]
  - Headache [Recovered/Resolved]
  - Concomitant disease aggravated [Recovering/Resolving]
  - Pulmonary arterial hypertension [Fatal]
  - Condition aggravated [Fatal]

NARRATIVE: CASE EVENT DATE: 20180906
